FAERS Safety Report 8459291-2 (Version None)
Quarter: 2012Q2

REPORT INFORMATION
  Report Type: 
  Country: None (occurrence: None)
  Receive Date: 20120622
  Receipt Date: 20120618
  Transmission Date: 20120825
  Serious: Yes (Other)
  Sender: FDA-Public Use
  Company Number: US-AMGEN-USASP2012034544

PATIENT
  Sex: Male

DRUGS (1)
  1. ENBREL [Suspect]
     Indication: PSORIASIS
     Dosage: 25 MG, 2 TIMES/WK
     Dates: start: 20090101, end: 20120508

REACTIONS (7)
  - ATRIAL FIBRILLATION [None]
  - PSORIASIS [None]
  - CARDIOMEGALY [None]
  - ARTHRALGIA [None]
  - DEVICE LEAKAGE [None]
  - AORTIC DILATATION [None]
  - EJECTION FRACTION DECREASED [None]
